FAERS Safety Report 12510185 (Version 1)
Quarter: 2016Q2

REPORT INFORMATION
  Report Type: Spontaneous
  Country: US (occurrence: US)
  Receive Date: 20160629
  Receipt Date: 20160629
  Transmission Date: 20160815
  Serious: No
  Sender: FDA-Public Use
  Company Number: US-ASTRAZENECA-2016SE67729

PATIENT

DRUGS (3)
  1. QUETIAPINE FUMARATE. [Suspect]
     Active Substance: QUETIAPINE FUMARATE
     Indication: SLEEP DISORDER
     Dosage: UNKNOWN
     Route: 048
  2. RESTORIL [Concomitant]
     Active Substance: TEMAZEPAM
     Dosage: UNKNOWN
     Route: 065
  3. QUETIAPINE FUMARATE. [Suspect]
     Active Substance: QUETIAPINE FUMARATE
     Indication: AFFECTIVE DISORDER
     Dosage: UNKNOWN
     Route: 048

REACTIONS (6)
  - Feeling abnormal [Unknown]
  - Drug dose omission [Unknown]
  - Insomnia [Unknown]
  - Somnambulism [Unknown]
  - Product use issue [Unknown]
  - Off label use [Unknown]
